FAERS Safety Report 8418767-4 (Version None)
Quarter: 2012Q2

REPORT INFORMATION
  Report Type: 
  Country: None (occurrence: None)
  Receive Date: 20120607
  Receipt Date: 20120529
  Transmission Date: 20120825
  Serious: No
  Sender: FDA-Public Use
  Company Number: US-ASTRAZENECA-2012SE35573

PATIENT
  Age: 47 Year
  Sex: Female

DRUGS (3)
  1. PRILOSEC OTC [Interacting]
     Route: 048
  2. THYROID MEDICATION [Interacting]
  3. NEXIUM [Suspect]
     Route: 048

REACTIONS (4)
  - DRUG INTERACTION [None]
  - DRUG INEFFECTIVE [None]
  - DISEASE RECURRENCE [None]
  - DRUG DOSE OMISSION [None]
